FAERS Safety Report 5875102-3 (Version None)
Quarter: 2008Q3

REPORT INFORMATION
  Report Type: 
  Country: None (occurrence: None)
  Receive Date: 20080909
  Receipt Date: 20080904
  Transmission Date: 20090109
  Serious: Yes (Hospitalization)
  Sender: FDA-Public Use
  Company Number: A0745947A

PATIENT
  Age: 56 Year
  Sex: Female

DRUGS (5)
  1. LAMICTAL [Suspect]
     Indication: BIPOLAR DISORDER
     Dosage: 100MG TWICE PER DAY
     Route: 048
     Dates: start: 20030101
  2. AUGMENTIN '125' [Suspect]
     Indication: GROIN ABSCESS
     Dates: start: 20020101, end: 20020101
  3. ABILIFY [Concomitant]
     Dates: start: 20080630, end: 20080814
  4. BLOOD PRESSURE MEDICATION [Concomitant]
  5. INSULIN [Concomitant]

REACTIONS (7)
  - DIPLOPIA [None]
  - FATIGUE [None]
  - INSOMNIA [None]
  - RASH [None]
  - SPEECH DISORDER [None]
  - VISION BLURRED [None]
  - VOMITING [None]
